FAERS Safety Report 23631516 (Version 1)
Quarter: 2024Q1

REPORT INFORMATION
  Report Type: Spontaneous
  Country: US (occurrence: US)
  Receive Date: 20240314
  Receipt Date: 20240314
  Transmission Date: 20240410
  Serious: Yes (Death)
  Sender: FDA-Public Use
  Company Number: US-PFIZER INC-202200349172

PATIENT
  Age: 80 Year
  Sex: Male
  Weight: 91.17 kg

DRUGS (1)
  1. VYNDAMAX [Suspect]
     Active Substance: TAFAMIDIS
     Indication: Amyloidosis
     Dosage: 61 MG, 1X/DAY
     Dates: start: 2021

REACTIONS (1)
  - Death [Fatal]

NARRATIVE: CASE EVENT DATE: 20240305
